FAERS Safety Report 5226379-9 (Version None)
Quarter: 2007Q1

REPORT INFORMATION
  Report Type: 
  Country: None (occurrence: None)
  Receive Date: 20070201
  Receipt Date: 20070124
  Transmission Date: 20070707
  Serious: Yes (Other)
  Sender: FDA-Public Use
  Company Number: US-JNJFOC-20061002730

PATIENT
  Sex: Female
  Weight: 115.67 kg

DRUGS (6)
  1. TOPAMAX [Suspect]
     Dosage: 100 MG IN AM, 200 MG IN PM
     Route: 048
  2. TOPAMAX [Suspect]
     Dosage: IN THIRD TRIMESTER
     Route: 048
  3. TOPAMAX [Suspect]
     Indication: EPILEPSY
     Route: 048
  4. ZOLOFT [Concomitant]
     Indication: DEPRESSION
     Route: 048
  5. FOLIC ACID [Concomitant]
     Route: 048
  6. FOLIC ACID [Concomitant]
     Route: 048

REACTIONS (2)
  - CAESAREAN SECTION [None]
  - DRUG EXPOSURE DURING PREGNANCY [None]
